FAERS Safety Report 20650958 (Version 1)
Quarter: 2022Q1

REPORT INFORMATION
  Report Type: Report from Study
  Country: IT (occurrence: None)
  Receive Date: 20220329
  Receipt Date: 20220329
  Transmission Date: 20220423
  Serious: Yes (Other)
  Sender: FDA-Public Use
  Company Number: IT-Merck Healthcare KGaA-9307842

PATIENT
  Sex: Female

DRUGS (3)
  1. EUTHYROX [Suspect]
     Active Substance: LEVOTHYROXINE SODIUM
     Indication: Surgery
  2. CORTONE [Concomitant]
     Active Substance: CORTISONE ACETATE
     Indication: Surgery
  3. TESTOSTERONE [Concomitant]
     Active Substance: TESTOSTERONE
     Indication: Surgery
     Dosage: TESTOSTERONE GEL

REACTIONS (5)
  - Hypertensive crisis [Recovered/Resolved]
  - Suffocation feeling [Recovered/Resolved]
  - Panic attack [Recovered/Resolved]
  - Heart rate increased [Recovered/Resolved]
  - Tremor [Recovered/Resolved]
